FAERS Safety Report 10073257 (Version 1)
Quarter: 2014Q2

REPORT INFORMATION
  Report Type: Spontaneous
  Country: CA (occurrence: CA)
  Receive Date: 20140411
  Receipt Date: 20140411
  Transmission Date: 20141212
  Serious: Yes (Life-Threatening, Other)
  Sender: FDA-Public Use
  Company Number: CA-GLAXOSMITHKLINE-A1068963A

PATIENT
  Age: 37 Year
  Sex: Male
  Weight: 86 kg

DRUGS (1)
  1. AVODART [Suspect]
     Indication: PRODUCT USED FOR UNKNOWN INDICATION
     Dosage: 1CAP PER DAY
     Route: 048

REACTIONS (8)
  - Anxiety [Recovered/Resolved]
  - Depression [Recovered/Resolved]
  - Endocrine disorder [Recovered/Resolved]
  - Erectile dysfunction [Recovered/Resolved]
  - Hormone level abnormal [Recovered/Resolved]
  - Insomnia [Recovered/Resolved]
  - Self-injurious ideation [Recovered/Resolved]
  - Weight decreased [Recovered/Resolved]
